FAERS Safety Report 7332428-4 (Version None)
Quarter: 2011Q1

REPORT INFORMATION
  Report Type: 
  Country: None (occurrence: None)
  Receive Date: 20110304
  Receipt Date: 20110303
  Transmission Date: 20110831
  Serious: Yes (Hospitalization)
  Sender: FDA-Public Use
  Company Number: US-BRISTOL-MYERS SQUIBB COMPANY-14663777

PATIENT
  Age: 62 Year
  Sex: Male

DRUGS (5)
  1. OXYCODONE [Concomitant]
     Dates: start: 20071001
  2. LORAZEPAM [Concomitant]
     Dates: start: 20070601
  3. BRIVANIB ALANINATE [Suspect]
     Indication: SQUAMOUS CELL CARCINOMA
     Route: 048
     Dates: start: 20090521
  4. LYRICA [Concomitant]
     Dates: start: 20071001
  5. IXABEPILONE [Suspect]
     Indication: SQUAMOUS CELL CARCINOMA
     Route: 042
     Dates: start: 20090611, end: 20090611

REACTIONS (1)
  - CEREBROVASCULAR ACCIDENT [None]
